FAERS Safety Report 8028065-9 (Version None)
Quarter: 2012Q1

REPORT INFORMATION
  Report Type: 
  Country: None (occurrence: None)
  Receive Date: 20120104
  Receipt Date: 20111222
  Transmission Date: 20120608
  Serious: Yes (Other)
  Sender: FDA-Public Use
  Company Number: 201112072

PATIENT
  Age: 87 Year
  Sex: Male

DRUGS (3)
  1. ANTIHYPERTENSIVES (ANTIHYPERTENSIVES) [Concomitant]
  2. WARFARIN SODIUM [Concomitant]
  3. XIAFLEX [Suspect]
     Indication: DUPUYTREN'S CONTRACTURE
     Dosage: 0.58 MG, 1 IN 1 D, INTRALESIONAL
     Route: 026
     Dates: start: 20111110, end: 20111111

REACTIONS (4)
  - DUPUYTREN'S CONTRACTURE [None]
  - DISEASE RECURRENCE [None]
  - SKIN GRAFT [None]
  - LACERATION [None]
